FAERS Safety Report 16930407 (Version 2)
Quarter: 2019Q4

REPORT INFORMATION
  Report Type: Report from Study
  Country: CO (occurrence: CO)
  Receive Date: 20191017
  Receipt Date: 20191023
  Transmission Date: 20200122
  Serious: Yes (Death)
  Sender: FDA-Public Use
  Company Number: NVSC2019CO001857

PATIENT
  Age: 87 Year
  Sex: Female

DRUGS (1)
  1. REVOLADE [Suspect]
     Active Substance: ELTROMBOPAG
     Indication: IMMUNE THROMBOCYTOPENIC PURPURA
     Dosage: 50 MG, QD (STOPPED ON 09 OCT 2019)
     Route: 048
     Dates: start: 20190110

REACTIONS (1)
  - Bile duct obstruction [Fatal]

NARRATIVE: CASE EVENT DATE: 20191009
